FAERS Safety Report 21561078 (Version 2)
Quarter: 2024Q2

REPORT INFORMATION
  Report Type: Report from Study
  Country: US (occurrence: US)
  Receive Date: 20221107
  Receipt Date: 20240422
  Transmission Date: 20240716
  Serious: No
  Sender: FDA-Public Use
  Company Number: US-ABBVIE-22K-163-4510275-00

PATIENT
  Age: 61 Year
  Sex: Male

DRUGS (2)
  1. IMBRUVICA [Suspect]
     Active Substance: IBRUTINIB
     Indication: Chronic lymphocytic leukaemia
     Route: 048
     Dates: end: 20220824
  2. IMBRUVICA [Suspect]
     Active Substance: IBRUTINIB
     Indication: Chronic lymphocytic leukaemia
     Route: 048
     Dates: start: 20220922

REACTIONS (5)
  - Blood glucose decreased [Recovering/Resolving]
  - Asthenia [Unknown]
  - White blood cell count decreased [Unknown]
  - Dizziness [Unknown]
  - Dehydration [Unknown]

NARRATIVE: CASE EVENT DATE: 20220817
